FAERS Safety Report 5465578-8 (Version None)
Quarter: 2007Q3

REPORT INFORMATION
  Report Type: 
  Country: None (occurrence: None)
  Receive Date: 20070924
  Receipt Date: 19940803
  Transmission Date: 20080115
  Serious: Yes (Death, Hospitalization)
  Sender: FDA-Public Use
  Company Number: FR-PFIZER INC-2006122740

PATIENT
  Sex: Male

DRUGS (5)
  1. IRINOTECAN HCL [Suspect]
     Indication: RESPIRATORY TRACT CARCINOMA IN SITU
     Dosage: DAILY DOSE:360MG
     Route: 042
     Dates: start: 19940704, end: 19940704
  2. ACETAMINOPHEN [Concomitant]
     Dosage: DAILY DOSE:3GRAM-FREQ:EVERY DAY
     Route: 048
  3. FLUOROURACIL [Concomitant]
     Dosage: DAILY DOSE:900MG-FREQ:EVERY DAY
     Route: 042
     Dates: start: 19940705, end: 19940709
  4. PREDNISONE [Concomitant]
     Dosage: DAILY DOSE:20MG-FREQ:EVERY DAY
     Route: 048
  5. RANITIDINE [Concomitant]
     Dosage: DAILY DOSE:300MG-FREQ:EVERY DAY
     Route: 048

REACTIONS (5)
  - ARRHYTHMIA [None]
  - COMA [None]
  - NEUTROPENIA [None]
  - PYREXIA [None]
  - RESPIRATORY FAILURE [None]
